FAERS Safety Report 19855596 (Version 1)
Quarter: 2021Q3

REPORT INFORMATION
  Report Type: Spontaneous
  Country: US (occurrence: US)
  Receive Date: 20210920
  Receipt Date: 20210920
  Transmission Date: 20211014
  Serious: No
  Sender: FDA-Public Use
  Company Number: None

PATIENT
  Age: 54 Year
  Sex: Female
  Weight: 70.2 kg

DRUGS (5)
  1. PRALUENT [Suspect]
     Active Substance: ALIROCUMAB
     Indication: HYPERCHOLESTEROLAEMIA
     Dosage: ?          OTHER FREQUENCY:EVERY 2 WEEKS;?
     Route: 058
     Dates: start: 20210827
  2. GABAPENTIN 900 QD [Concomitant]
  3. METFORMIN 1000MG BID [Concomitant]
  4. TRAMADOL 50MG BID [Concomitant]
  5. LISINOPRIL  10MG QD [Concomitant]

REACTIONS (2)
  - Injection site bruising [None]
  - Diarrhoea [None]

NARRATIVE: CASE EVENT DATE: 20210827
